FAERS Safety Report 15170941 (Version 2)
Quarter: 2018Q3

REPORT INFORMATION
  Report Type: Spontaneous
  Country: US (occurrence: US)
  Receive Date: 20180720
  Receipt Date: 20180928
  Transmission Date: 20181010
  Serious: No
  Sender: FDA-Public Use
  Company Number: US-SA-2018SA194781

PATIENT
  Age: 30 Year
  Sex: Male

DRUGS (1)
  1. DUPIXENT [Suspect]
     Active Substance: DUPILUMAB
     Dosage: 300 MG, QOW
     Route: 058
     Dates: start: 20180619

REACTIONS (6)
  - Lymph node pain [Unknown]
  - Arthralgia [Unknown]
  - Skin irritation [Unknown]
  - Headache [Unknown]
  - Dermatitis atopic [Unknown]
  - Dry skin [Unknown]
